FAERS Safety Report 24711221 (Version 1)
Quarter: 2024Q4

REPORT INFORMATION
  Report Type: Spontaneous
  Country: US (occurrence: None)
  Receive Date: 20241206
  Receipt Date: 20241206
  Transmission Date: 20250115
  Serious: No
  Sender: Public
  Company Number: None

PATIENT
  Age: 79 Year
  Sex: Female
  Weight: 65.77 kg

DRUGS (1)
  1. RINVOQ [Suspect]
     Active Substance: UPADACITINIB
     Indication: Osteoporosis
     Dosage: FREQUENCY : DAILY;?
     Route: 048
     Dates: start: 202312

REACTIONS (2)
  - Hospitalisation [None]
  - Therapy interrupted [None]
